FAERS Safety Report 6487639-7 (Version None)
Quarter: 2009Q4

REPORT INFORMATION
  Report Type: 
  Country: None (occurrence: None)
  Receive Date: 20091209
  Receipt Date: 20091209
  Transmission Date: 20100525
  Serious: Yes (Life-Threatening)
  Sender: FDA-Public Use
  Company Number: None

PATIENT
  Sex: Male
  Weight: 53.8 kg

DRUGS (1)
  1. SORAFENIB 200MG BAYER [Suspect]
     Indication: PANCREATIC CARCINOMA METASTATIC
     Dosage: 600 MG BID PO
     Route: 048
     Dates: start: 20090307, end: 20090408

REACTIONS (3)
  - MALIGNANT NEOPLASM PROGRESSION [None]
  - PANCREATIC CARCINOMA METASTATIC [None]
  - PULMONARY EMBOLISM [None]
